FAERS Safety Report 20354471 (Version 1)
Quarter: 2022Q1

REPORT INFORMATION
  Report Type: Spontaneous
  Country: US (occurrence: US)
  Receive Date: 20220120
  Receipt Date: 20220120
  Transmission Date: 20220423
  Serious: No
  Sender: FDA-Public Use
  Company Number: US-ALLERGAN-2131022US

PATIENT
  Sex: Female

DRUGS (4)
  1. ALORA [Suspect]
     Active Substance: ESTRADIOL
     Indication: Hormone replacement therapy
     Dosage: ONE PATCH EVERY THREE DAYS
     Route: 062
  2. SINGULAIR [Concomitant]
     Active Substance: MONTELUKAST SODIUM
     Indication: Asthma
     Dosage: 10 MG, QD
  3. ESTRADIOL [Concomitant]
     Active Substance: ESTRADIOL
     Indication: Hormone replacement therapy
  4. CLIMARA [ESTRADIOL] [Concomitant]
     Indication: Hormone replacement therapy

REACTIONS (9)
  - Emotional distress [Recovered/Resolved]
  - Therapy interrupted [Unknown]
  - Inappropriate schedule of product administration [Unknown]
  - Wrong technique in product usage process [Unknown]
  - Fatigue [Recovered/Resolved]
  - Irritability [Recovered/Resolved]
  - Mood swings [Recovered/Resolved]
  - Migraine [Unknown]
  - Packaging design issue [Unknown]
